FAERS Safety Report 11516060 (Version 1)
Quarter: 2015Q3

REPORT INFORMATION
  Report Type: Spontaneous
  Country: US (occurrence: US)
  Receive Date: 20150917
  Receipt Date: 20150917
  Transmission Date: 20151125
  Serious: Yes (Death, Other)
  Sender: FDA-Public Use
  Company Number: US-TAKEDA-2014TUS007250

PATIENT

DRUGS (9)
  1. METFORMIN [Concomitant]
     Active Substance: METFORMIN HYDROCHLORIDE
     Dosage: UNK
  2. ARISTOLOCHIA FANGCHI [Concomitant]
     Dosage: UNK
  3. IFOSFAMIDE. [Concomitant]
     Active Substance: IFOSFAMIDE
     Dosage: UNK
  4. FORTAMET [Concomitant]
     Active Substance: METFORMIN HYDROCHLORIDE
     Dosage: UNK
  5. AMARYL [Concomitant]
     Active Substance: GLIMEPIRIDE
     Dosage: UNK
  6. REZULIN [Concomitant]
     Active Substance: TROGLITAZONE
     Dosage: UNK
  7. DIABETA                            /00145301/ [Concomitant]
     Dosage: UNK
  8. ACTOS [Suspect]
     Active Substance: PIOGLITAZONE HYDROCHLORIDE
     Indication: TYPE 2 DIABETES MELLITUS
     Dosage: UNK
     Route: 048
     Dates: start: 2005, end: 2010
  9. PRECOSE [Concomitant]
     Active Substance: ACARBOSE
     Dosage: UNK

REACTIONS (1)
  - Bladder cancer [Fatal]
